FAERS Safety Report 23374610 (Version 1)
Quarter: 2024Q1

REPORT INFORMATION
  Report Type: Spontaneous
  Country: US (occurrence: US)
  Receive Date: 20240105
  Receipt Date: 20240105
  Transmission Date: 20240410
  Serious: No
  Sender: FDA-Public Use
  Company Number: US-COOPERSURGICAL, INC.-US-2023CPS003662

PATIENT
  Sex: Female

DRUGS (1)
  1. PARAGARD T 380A [Suspect]
     Active Substance: COPPER
     Indication: Product used for unknown indication
     Dosage: UNK
     Route: 015
     Dates: start: 20231006

REACTIONS (8)
  - Fatigue [Unknown]
  - Muscle spasms [Unknown]
  - Intermenstrual bleeding [Recovered/Resolved]
  - Pelvic pain [Recovered/Resolved]
  - Anaemia [Unknown]
  - Nausea [Unknown]
  - Device expulsion [Unknown]
  - Menstruation irregular [Unknown]

NARRATIVE: CASE EVENT DATE: 20230101
